FAERS Safety Report 8321158-8 (Version None)
Quarter: 2012Q2

REPORT INFORMATION
  Report Type: 
  Country: None (occurrence: None)
  Receive Date: 20120430
  Receipt Date: 20120418
  Transmission Date: 20120825
  Serious: Yes (Other)
  Sender: FDA-Public Use
  Company Number: US-JNJFOC-20120408453

PATIENT
  Sex: Female
  Weight: 52.07 kg

DRUGS (1)
  1. REMICADE [Suspect]
     Indication: RHEUMATOID ARTHRITIS
     Route: 042
     Dates: start: 20070101, end: 20120404

REACTIONS (3)
  - ULTRASOUND ANTENATAL SCREEN ABNORMAL [None]
  - VAGINAL HAEMORRHAGE [None]
  - MATERNAL EXPOSURE DURING PREGNANCY [None]
